FAERS Safety Report 15073455 (Version 13)
Quarter: 2019Q1

REPORT INFORMATION
  Report Type: Spontaneous
  Country: US (occurrence: US)
  Receive Date: 20180627
  Receipt Date: 20190101
  Transmission Date: 20190417
  Serious: No
  Sender: FDA-Public Use
  Company Number: US-PFIZER INC-2018256741

PATIENT
  Age: 49 Year
  Sex: Male
  Weight: 7.71 kg

DRUGS (1)
  1. SUTENT [Suspect]
     Active Substance: SUNITINIB MALATE
     Indication: METASTATIC RENAL CELL CARCINOMA
     Dosage: 50 MG, CYCLIC (DAILY, 4 WEEKS ON AND 2 WEEKS OFF) (50 MG -28 DAYS ON / 14 DAYS OFF)
     Route: 048
     Dates: start: 20180615

REACTIONS (29)
  - Chromaturia [Unknown]
  - Abdominal discomfort [Unknown]
  - Platelet count decreased [Recovered/Resolved]
  - Nail bed disorder [Unknown]
  - Oropharyngeal pain [Recovering/Resolving]
  - Flatulence [Not Recovered/Not Resolved]
  - Dry skin [Unknown]
  - Abdominal pain upper [Recovered/Resolved]
  - Fatigue [Recovering/Resolving]
  - Throat irritation [Recovering/Resolving]
  - Nasal discomfort [Unknown]
  - Glossodynia [Recovering/Resolving]
  - Oral pain [Not Recovered/Not Resolved]
  - Constipation [Unknown]
  - Ageusia [Recovering/Resolving]
  - Decreased appetite [Not Recovered/Not Resolved]
  - Skin disorder [Unknown]
  - Rash maculo-papular [Recovered/Resolved]
  - Hair colour changes [Unknown]
  - Abdominal distension [Not Recovered/Not Resolved]
  - Cough [Not Recovered/Not Resolved]
  - Dry mouth [Recovered/Resolved]
  - Heart rate increased [Unknown]
  - Gastrooesophageal reflux disease [Unknown]
  - Hypogeusia [Not Recovered/Not Resolved]
  - Stomatitis [Recovering/Resolving]
  - Dyspepsia [Unknown]
  - Weight decreased [Unknown]
  - Pain [Recovering/Resolving]

NARRATIVE: CASE EVENT DATE: 2018
